FAERS Safety Report 5285098-3 (Version None)
Quarter: 2007Q2

REPORT INFORMATION
  Report Type: 
  Country: None (occurrence: None)
  Receive Date: 20070403
  Receipt Date: 20070326
  Transmission Date: 20071010
  Serious: Yes (Other)
  Sender: FDA-Public Use
  Company Number: PHBS2006BR09617

PATIENT
  Age: 49 Year
  Sex: Male
  Weight: 82 kg

DRUGS (1)
  1. FORASEQ [Suspect]
     Indication: PNEUMONIA
     Dosage: UNK, BID
     Dates: start: 20060301

REACTIONS (1)
  - HAEMOPTYSIS [None]
